FAERS Safety Report 9408910 (Version 2)
Quarter: 2013Q4

REPORT INFORMATION
  Report Type: Report from Study
  Country: CA (occurrence: CA)
  Receive Date: 20130719
  Receipt Date: 20131217
  Transmission Date: 20140711
  Serious: Yes (Other)
  Sender: FDA-Public Use
  Company Number: CA-ROCHE-1247904

PATIENT
  Sex: Female
  Weight: 77.1 kg

DRUGS (8)
  1. RITUXAN [Suspect]
     Indication: GRANULOMATOSIS WITH POLYANGIITIS
     Route: 042
     Dates: start: 20120523
  2. RITUXAN [Suspect]
     Route: 042
     Dates: start: 20130130
  3. PRED FORTE [Suspect]
     Indication: EYE DISORDER
     Route: 047
  4. COSOPT [Suspect]
     Indication: EYE DISORDER
     Route: 047
  5. DIPHENHYDRAMINE HCL [Concomitant]
     Indication: PREMEDICATION
     Route: 048
     Dates: start: 20130130
  6. ACETAMINOPHEN [Concomitant]
     Indication: PREMEDICATION
     Route: 048
     Dates: start: 20130130
  7. PREDNISONE [Concomitant]
     Indication: PREMEDICATION
     Route: 042
     Dates: start: 20130130
  8. METHOTREXATE [Concomitant]
     Route: 048

REACTIONS (7)
  - Eye disorder [Not Recovered/Not Resolved]
  - Nerve injury [Not Recovered/Not Resolved]
  - Episcleritis [Not Recovered/Not Resolved]
  - Nausea [Not Recovered/Not Resolved]
  - Dizziness [Not Recovered/Not Resolved]
  - Weight increased [Unknown]
  - Sinus disorder [Not Recovered/Not Resolved]
